FAERS Safety Report 4390249-9 (Version None)
Quarter: 2004Q2

REPORT INFORMATION
  Report Type: 
  Country: None (occurrence: None)
  Receive Date: 20040630
  Receipt Date: 20040630
  Transmission Date: 20050107
  Serious: No
  Sender: FDA-Public Use
  Company Number: None

PATIENT
  Age: 65 Year
  Sex: Male

DRUGS (1)
  1. ACTIVASE [Suspect]
     Dosage: 6.6 MG BOLUS THEN 59 MG OVER 60 MIN

REACTIONS (1)
  - INTRAVENTRICULAR HAEMORRHAGE [None]
